FAERS Safety Report 23139571 (Version 3)
Quarter: 2023Q4

REPORT INFORMATION
  Report Type: Report from Study
  Country: CA (occurrence: CA)
  Receive Date: 20231102
  Receipt Date: 20231128
  Transmission Date: 20240110
  Serious: Yes (Other)
  Sender: FDA-Public Use
  Company Number: CA-MTPC-MTDA2023-0025895

PATIENT
  Sex: Female

DRUGS (8)
  1. RADICAVA [Suspect]
     Active Substance: EDARAVONE
     Dosage: UNK, MAINTENANCE CYCLE
     Route: 048
     Dates: start: 20231015, end: 20231020
  2. RADICAVA [Suspect]
     Active Substance: EDARAVONE
     Dosage: UNK, MAINTENANCE CYCLE
     Route: 048
     Dates: start: 20231015, end: 20231020
  3. RADICAVA [Suspect]
     Active Substance: EDARAVONE
     Indication: Amyotrophic lateral sclerosis
     Dosage: UNK
     Route: 048
     Dates: start: 20230917
  4. RADICAVA [Suspect]
     Active Substance: EDARAVONE
     Indication: Amyotrophic lateral sclerosis
     Dosage: UNK
     Route: 048
     Dates: start: 20230917
  5. RADICAVA [Suspect]
     Active Substance: EDARAVONE
     Dosage: UNK, 10 DAYS OUT OF 14 ON, 14 DAYS OFF
     Route: 048
  6. RADICAVA [Suspect]
     Active Substance: EDARAVONE
     Dosage: UNK, 10 DAYS OUT OF 14 ON, 14 DAYS OFF
     Route: 048
  7. AMLODIPINE [Concomitant]
     Active Substance: AMLODIPINE BESYLATE
     Indication: Product used for unknown indication
     Dosage: UNK, QD
     Route: 065
  8. RILUTEK [Concomitant]
     Active Substance: RILUZOLE
     Indication: Product used for unknown indication
     Dosage: UNK, QD
     Route: 048
     Dates: start: 20230424

REACTIONS (4)
  - Depression [Not Recovered/Not Resolved]
  - Suicidal ideation [Unknown]
  - Cystitis [Unknown]
  - Dizziness [Unknown]
